FAERS Safety Report 7180213-9 (Version None)
Quarter: 2010Q4

REPORT INFORMATION
  Report Type: 
  Country: None (occurrence: None)
  Receive Date: 20101209
  Receipt Date: 20101206
  Transmission Date: 20110411
  Serious: Yes (Other)
  Sender: FDA-Public Use
  Company Number: TRP_07357_2010

PATIENT
  Sex: Male
  Weight: 64.8644 kg

DRUGS (2)
  1. INFERGEN 15 UG (NOT SPECIFIED) [Suspect]
     Indication: HEPATITIS C
     Dosage: 15 UG QD SUBCUTANEOUS
     Route: 058
     Dates: start: 20100903, end: 20101015
  2. RIBAPAK 400 MG (NOT SPECIFIED) [Suspect]
     Indication: HEPATITIS
     Dosage: 1000 MG, [400 MG QAM AND 600 MG QPM] ORAL
     Route: 048
     Dates: start: 20100702, end: 20101015

REACTIONS (5)
  - DECREASED APPETITE [None]
  - DYSPNOEA [None]
  - ELECTROCARDIOGRAM CHANGE [None]
  - FATIGUE [None]
  - WEIGHT DECREASED [None]
